FAERS Safety Report 6867187-2 (Version None)
Quarter: 2010Q3

REPORT INFORMATION
  Report Type: 
  Country: None (occurrence: None)
  Receive Date: 20100722
  Receipt Date: 20100713
  Transmission Date: 20110219
  Serious: Yes (Other)
  Sender: FDA-Public Use
  Company Number: B0647940A

PATIENT
  Age: 16 Year
  Sex: Female
  Weight: 81 kg

DRUGS (5)
  1. LAMICTAL [Suspect]
     Indication: EPILEPSY
     Route: 048
     Dates: start: 20100413
  2. ZOLPIDEM [Concomitant]
  3. URBANYL [Concomitant]
  4. KEPPRA [Concomitant]
  5. DAFALGAN [Concomitant]

REACTIONS (2)
  - PHOTOSENSITIVITY REACTION [None]
  - RASH VESICULAR [None]
